FAERS Safety Report 7336673-3 (Version None)
Quarter: 2011Q1

REPORT INFORMATION
  Report Type: 
  Country: None (occurrence: None)
  Receive Date: 20110308
  Receipt Date: 20110228
  Transmission Date: 20110831
  Serious: Yes (Hospitalization)
  Sender: FDA-Public Use
  Company Number: US-BIOGENIDEC-2010BI041895

PATIENT
  Sex: Female

DRUGS (1)
  1. TYSABRI [Suspect]
     Indication: MULTIPLE SCLEROSIS
     Route: 042
     Dates: start: 20101105, end: 20101215

REACTIONS (4)
  - GINGIVAL ABSCESS [None]
  - MULTIPLE SCLEROSIS RELAPSE [None]
  - HERPES ZOSTER [None]
  - BURNS THIRD DEGREE [None]
